FAERS Safety Report 25622857 (Version 1)
Quarter: 2025Q3

REPORT INFORMATION
  Report Type: Spontaneous
  Country: CN (occurrence: CN)
  Receive Date: 20250730
  Receipt Date: 20250730
  Transmission Date: 20251021
  Serious: Yes (Other)
  Sender: NOVARTIS
  Company Number: CN-002147023-NVSC2025CN118400

PATIENT
  Age: 82 Year
  Sex: Female
  Weight: 40 kg

DRUGS (1)
  1. ENTRESTO [Suspect]
     Active Substance: SACUBITRIL\VALSARTAN
     Indication: Cardiac failure
     Dosage: 100 UG, QD
     Route: 048
     Dates: start: 20240623, end: 20240623

REACTIONS (11)
  - Heart rate increased [Unknown]
  - Blood pressure decreased [Recovering/Resolving]
  - Anaemia [Unknown]
  - Abdominal distension [Unknown]
  - Abdominal pain lower [Unknown]
  - Blood sodium decreased [Unknown]
  - Blood calcium decreased [Unknown]
  - Albumin globulin ratio abnormal [Unknown]
  - Abdominal tenderness [Unknown]
  - Globulin abnormal [Unknown]
  - Blood albumin decreased [Unknown]

NARRATIVE: CASE EVENT DATE: 20240623
